FAERS Safety Report 6222217-6 (Version None)
Quarter: 2009Q2

REPORT INFORMATION
  Report Type: 
  Country: None (occurrence: None)
  Receive Date: 20090611
  Receipt Date: 20090603
  Transmission Date: 20091009
  Serious: Yes (Hospitalization, Other)
  Sender: FDA-Public Use
  Company Number: PHHY2009GB22358

PATIENT
  Age: 40 Year
  Sex: Male

DRUGS (5)
  1. CARBAMAZEPINE [Suspect]
     Indication: EPILEPSY
     Dosage: 200 MG, TID
     Route: 048
  2. LEVETIRACETAM [Suspect]
     Indication: EPILEPSY
     Dosage: 150 MG, BID
     Route: 048
  3. OLANZAPINE [Suspect]
     Indication: SCHIZOAFFECTIVE DISORDER
     Dosage: 10 MG, QD
     Route: 048
  4. DIAZEPAM [Concomitant]
  5. MULTI-VITAMINS [Concomitant]

REACTIONS (1)
  - NEUTROPENIA [None]
